FAERS Safety Report 9915855 (Version 3)
Quarter: 2014Q2

REPORT INFORMATION
  Report Type: Spontaneous
  Country: US (occurrence: US)
  Receive Date: 20140221
  Receipt Date: 20140408
  Transmission Date: 20141212
  Serious: Yes (Death)
  Sender: FDA-Public Use
  Company Number: US-CELGENEUS-163-POMAL-14022738

PATIENT
  Age: 81 Year
  Sex: Female
  Weight: 87.62 kg

DRUGS (1)
  1. POMALYST [Suspect]
     Indication: PLASMA CELL MYELOMA
     Dosage: 4 MILLIGRAM
     Route: 048
     Dates: start: 20130524, end: 2014

REACTIONS (2)
  - Myocardial infarction [Fatal]
  - Aspiration [Fatal]
